FAERS Safety Report 4843965-6 (Version None)
Quarter: 2005Q4

REPORT INFORMATION
  Report Type: 
  Country: None (occurrence: None)
  Receive Date: 20051202
  Receipt Date: 20051004
  Transmission Date: 20060501
  Serious: Yes (Other)
  Sender: FDA-Public Use
  Company Number: US-MERCK-0510USA02472

PATIENT
  Age: 46 Year
  Sex: Male
  Weight: 102 kg

DRUGS (5)
  1. VIOXX [Suspect]
     Indication: ARTHRITIS
     Route: 048
     Dates: start: 20000101, end: 20030101
  2. HYDROCHLOROTHIAZIDE [Concomitant]
     Route: 065
  3. PROTONIX [Concomitant]
     Route: 065
  4. ATENOLOL [Concomitant]
     Route: 065
  5. ACCUPRIL [Concomitant]
     Route: 065

REACTIONS (1)
  - MYOCARDIAL INFARCTION [None]
